FAERS Safety Report 9757241 (Version 1)
Quarter: 2013Q4

REPORT INFORMATION
  Report Type: Report from Study
  Country: US (occurrence: US)
  Receive Date: 20131213
  Receipt Date: 20131213
  Transmission Date: 20140711
  Serious: Yes (Hospitalization, Other)
  Sender: FDA-Public Use
  Company Number: US-ABBVIE-13P-163-1177280-00

PATIENT
  Age: 69 Year
  Sex: Female

DRUGS (2)
  1. HUMIRA [Suspect]
     Indication: RHEUMATOID ARTHRITIS
     Dates: start: 2009
  2. UNKNOWN MEDICATIONS [Concomitant]
     Indication: PRODUCT USED FOR UNKNOWN INDICATION

REACTIONS (15)
  - Brain contusion [Unknown]
  - Cerebral haemorrhage [Unknown]
  - Gastrointestinal tube insertion [Unknown]
  - Diabetes mellitus [Unknown]
  - Dehydration [Unknown]
  - Fall [Not Recovered/Not Resolved]
  - Fungal infection [Unknown]
  - Musculoskeletal pain [Unknown]
  - Back pain [Unknown]
  - Pain [Unknown]
  - Abasia [Unknown]
  - Impaired self-care [Unknown]
  - Local swelling [Unknown]
  - Hyperaesthesia [Unknown]
  - Mobility decreased [Unknown]
